FAERS Safety Report 13960804 (Version 1)
Quarter: 2017Q3

REPORT INFORMATION
  Report Type: Spontaneous
  Country: US (occurrence: US)
  Receive Date: 20170912
  Receipt Date: 20170912
  Transmission Date: 20171128
  Serious: No
  Sender: FDA-Public Use
  Company Number: US-BAYER-2017-158393

PATIENT
  Age: 62 Year
  Sex: Female

DRUGS (2)
  1. CLIMARA PRO [Suspect]
     Active Substance: ESTRADIOL\LEVONORGESTREL
     Indication: MENOPAUSE
  2. CLIMARA PRO [Suspect]
     Active Substance: ESTRADIOL\LEVONORGESTREL
     Indication: HORMONE REPLACEMENT THERAPY
     Dosage: UNK UNK, OW
     Route: 062
     Dates: start: 201708, end: 201708

REACTIONS (3)
  - Product physical issue [None]
  - Product adhesion issue [None]
  - Incorrect dose administered [None]

NARRATIVE: CASE EVENT DATE: 201708
